FAERS Safety Report 23136532 (Version 1)
Quarter: 2023Q4

REPORT INFORMATION
  Report Type: Spontaneous
  Country: US (occurrence: US)
  Receive Date: 20231102
  Receipt Date: 20231102
  Transmission Date: 20240110
  Serious: No
  Sender: FDA-Public Use
  Company Number: US-OYSTER POINT PHARMA, INC-US-OYS-23-000993

PATIENT
  Age: 66 Year
  Sex: Female

DRUGS (2)
  1. TYRVAYA [Suspect]
     Active Substance: VARENICLINE TARTRATE
     Indication: Dry eye
     Dosage: UNK, QD
     Route: 045
     Dates: start: 20230816, end: 20230818
  2. UNSPECIFIED INGREDIENT [Concomitant]
     Active Substance: UNSPECIFIED INGREDIENT
     Indication: Graves^ disease
     Dosage: UNK, UNK
     Route: 065

REACTIONS (15)
  - Nausea [Unknown]
  - Vomiting [Unknown]
  - Body temperature fluctuation [Unknown]
  - Rhinorrhoea [Unknown]
  - Lacrimation increased [Unknown]
  - Tremor [Unknown]
  - Hyperhidrosis [Unknown]
  - Cyanosis [Unknown]
  - Feeling cold [Unknown]
  - Raynaud^s phenomenon [Unknown]
  - Immune system disorder [Not Recovered/Not Resolved]
  - Arthralgia [Not Recovered/Not Resolved]
  - Sneezing [Unknown]
  - Throat irritation [Unknown]
  - Off label use [Unknown]

NARRATIVE: CASE EVENT DATE: 20230801
